FAERS Safety Report 5950783-4 (Version None)
Quarter: 2008Q4

REPORT INFORMATION
  Report Type: 
  Country: None (occurrence: None)
  Receive Date: 20081112
  Receipt Date: 20081106
  Transmission Date: 20090506
  Serious: Yes (Hospitalization)
  Sender: FDA-Public Use
  Company Number: US-ABBOTT-08P-163-0485948-00

PATIENT
  Sex: Female
  Weight: 49.94 kg

DRUGS (12)
  1. HUMIRA [Suspect]
     Indication: ANKYLOSING SPONDYLITIS
     Route: 058
     Dates: start: 20070101, end: 20080801
  2. HUMIRA [Suspect]
     Route: 058
     Dates: start: 20081101
  3. PROVELLA-14 [Concomitant]
     Indication: HORMONE REPLACEMENT THERAPY
  4. ATENOLOL [Concomitant]
     Indication: HYPERTENSION
  5. HYDROCHLOROTHIAZIDE [Concomitant]
     Indication: HYPERTENSION
  6. PREDNISONE TAB [Concomitant]
     Indication: ANKYLOSING SPONDYLITIS
  7. DULOXETINE HYDROCHLORIDE [Concomitant]
     Indication: DEPRESSION
  8. OMEPRAZOLE MAGNESIUM [Concomitant]
     Indication: DRUG USE FOR UNKNOWN INDICATION
  9. POTASSIUM CHLORIDE [Concomitant]
     Indication: ELECTROLYTE SUBSTITUTION THERAPY
  10. MACROGOL [Concomitant]
     Indication: CONSTIPATION
  11. SIMVASTATIN [Concomitant]
     Indication: BLOOD CHOLESTEROL INCREASED
  12. ACETYLSALICYLIC ACID SRT [Concomitant]
     Indication: DRUG USE FOR UNKNOWN INDICATION
     Route: 048

REACTIONS (3)
  - BLADDER DISORDER [None]
  - CHEST PAIN [None]
  - CYSTITIS [None]
